FAERS Safety Report 8832859 (Version 3)
Quarter: 2012Q4

REPORT INFORMATION
  Report Type: 
  Country: US (occurrence: US)
  Receive Date: 20121009
  Receipt Date: 20121025
  Transmission Date: 20130627
  Serious: Yes (Other)
  Sender: FDA-Public Use
  Company Number: US-AMGEN-USASP2012063710

PATIENT
  Age: 71 Year
  Sex: Female
  Weight: 67 kg

DRUGS (5)
  1. NEULASTA [Suspect]
     Indication: CHEMOTHERAPY
     Dosage: 6 mg, day 2 of chemo
     Route: 058
     Dates: start: 2007
  2. PROLIA [Suspect]
     Indication: PRODUCT USED FOR UNKNOWN INDICATION
     Dosage: UNK
  3. ABRAXANE /01116001/ [Concomitant]
     Indication: BREAST CANCER
     Dosage: UNK UNK, q3wk
     Route: 042
     Dates: start: 201108, end: 20111220
  4. XELODA [Concomitant]
  5. FEMARA [Concomitant]

REACTIONS (13)
  - Breast cancer recurrent [Not Recovered/Not Resolved]
  - Metastases to skin [Unknown]
  - Activities of daily living impaired [Not Recovered/Not Resolved]
  - Abdominal discomfort [Not Recovered/Not Resolved]
  - Oral pain [Not Recovered/Not Resolved]
  - Musculoskeletal stiffness [Not Recovered/Not Resolved]
  - Dysstasia [Not Recovered/Not Resolved]
  - Abdominal pain [Unknown]
  - Lymphoedema [Unknown]
  - Decreased appetite [Unknown]
  - Weight decreased [Unknown]
  - Joint injury [Unknown]
  - Bone pain [Unknown]
